FAERS Safety Report 9298256 (Version 2)
Quarter: 2014Q2

REPORT INFORMATION
  Report Type: Spontaneous
  Country: FR (occurrence: None)
  Receive Date: 20121001
  Receipt Date: 20140527
  Transmission Date: 20141212
  Serious: Yes (Other)
  Sender: FDA-Public Use
  Company Number: JPI-P-006442

PATIENT
  Age: 33 Year
  Sex: Female

DRUGS (6)
  1. XYREM [Suspect]
     Route: 048
     Dates: start: 20081023, end: 20090828
  2. LEVOTHYROXINE SODIUM [Concomitant]
  3. PILOCARPINE [Concomitant]
  4. HYDROXYCHLOROQUINE PHOSPHATE [Concomitant]
  5. GONADORELIN [Concomitant]
  6. PROPRANOLOL [Concomitant]

REACTIONS (13)
  - Formication [None]
  - Dyspnoea [None]
  - Migraine [None]
  - Pain in extremity [None]
  - Hypoaesthesia [None]
  - Vertigo [None]
  - Nausea [None]
  - Abdominal pain [None]
  - Nightmare [None]
  - Hypoaesthesia [None]
  - Hypoaesthesia [None]
  - Hypoaesthesia [None]
  - Cholelithiasis [None]
